FAERS Safety Report 23784910 (Version 1)
Quarter: 2024Q2

REPORT INFORMATION
  Report Type: Report from Study
  Country: BR (occurrence: BR)
  Receive Date: 20240425
  Receipt Date: 20240425
  Transmission Date: 20240716
  Serious: Yes (Other)
  Sender: FDA-Public Use
  Company Number: BR-TAKEDA-2024TUS037279

PATIENT
  Age: 59 Year
  Sex: Male

DRUGS (1)
  1. VEDOLIZUMAB [Suspect]
     Active Substance: VEDOLIZUMAB
     Indication: Colitis ulcerative
     Dosage: 300 MILLIGRAM
     Route: 042

REACTIONS (7)
  - Diarrhoea haemorrhagic [Recovering/Resolving]
  - Malaise [Recovering/Resolving]
  - Asthenia [Unknown]
  - Colonoscopy abnormal [Recovering/Resolving]
  - Emotional disorder [Unknown]
  - Abdominal pain [Recovering/Resolving]
  - Fatigue [Recovering/Resolving]

NARRATIVE: CASE EVENT DATE: 20231001
